FAERS Safety Report 19454196 (Version 1)
Quarter: 2021Q2

REPORT INFORMATION
  Report Type: Spontaneous
  Country: NL (occurrence: NL)
  Receive Date: 20210623
  Receipt Date: 20210623
  Transmission Date: 20210717
  Serious: Yes (Hospitalization)
  Sender: FDA-Public Use
  Company Number: NVSC2021NL135233

PATIENT
  Age: 91 Year
  Sex: Female
  Weight: 65 kg

DRUGS (5)
  1. CLOBETASOL [Concomitant]
     Active Substance: CLOBETASOL
     Indication: PRODUCT USED FOR UNKNOWN INDICATION
     Dosage: UNK (CREME, 0,5 MG/G)
     Route: 065
  2. DEXTRAN SULFATE;HYPROMELLOSE [Concomitant]
     Indication: PRODUCT USED FOR UNKNOWN INDICATION
     Dosage: UNK (OOGDRUPPELS, 1/3 MG/ML)
     Route: 065
  3. CLEMASTINE [Concomitant]
     Active Substance: CLEMASTINE
     Indication: PRODUCT USED FOR UNKNOWN INDICATION
     Dosage: UNK (INJECTIEVLOEISTOF, 1 MG/ML)
     Route: 065
  4. AMOXICILLIN. [Suspect]
     Active Substance: AMOXICILLIN
     Indication: STOMATITIS
     Dosage: 500 MG, Q8H (3X PER DAG 1 STUK )
     Route: 065
     Dates: start: 202105, end: 20210604
  5. DALTEPARIN [Concomitant]
     Active Substance: DALTEPARIN
     Indication: PRODUCT USED FOR UNKNOWN INDICATION
     Dosage: UNK (INJECTIEVLOEISTOF, 25.000 IE/ML )
     Route: 065

REACTIONS (4)
  - Erythema [Recovering/Resolving]
  - Pruritus [Unknown]
  - Dehydration [Recovering/Resolving]
  - Skin swelling [Unknown]

NARRATIVE: CASE EVENT DATE: 20210606
